FAERS Safety Report 16106193 (Version 1)
Quarter: 2019Q1

REPORT INFORMATION
  Report Type: Spontaneous
  Country: US (occurrence: US)
  Receive Date: 20190322
  Receipt Date: 20190322
  Transmission Date: 20190418
  Serious: No
  Sender: FDA-Public Use
  Company Number: US-TEVA-2019-US-1030754

PATIENT
  Sex: Male

DRUGS (3)
  1. CLONAZEPAM ACTAVIS [Suspect]
     Active Substance: CLONAZEPAM
     Indication: BIPOLAR I DISORDER
     Route: 065
     Dates: start: 20181230
  2. CLONAZEPAM ACTAVIS [Suspect]
     Active Substance: CLONAZEPAM
     Indication: ANXIETY
  3. CLONAZEPAM ACTAVIS [Suspect]
     Active Substance: CLONAZEPAM
     Indication: MUSCLE TWITCHING

REACTIONS (4)
  - Withdrawal syndrome [Unknown]
  - Somnolence [Unknown]
  - Feeling abnormal [Unknown]
  - Drug effect decreased [Unknown]
